FAERS Safety Report 7416417-7 (Version None)
Quarter: 2011Q2

REPORT INFORMATION
  Report Type: 
  Country: None (occurrence: None)
  Receive Date: 20110414
  Receipt Date: 20110401
  Transmission Date: 20111010
  Serious: Yes (Death)
  Sender: FDA-Public Use
  Company Number: SE-BAYER-2010-005974

PATIENT
  Sex: Female

DRUGS (4)
  1. DEXIBUPROFEN [Suspect]
  2. ASPIRIN [Suspect]
  3. DICLOFENAC [Suspect]
     Indication: BACK PAIN
     Route: 051
  4. PARACETAMOL [Concomitant]
     Indication: BACK PAIN

REACTIONS (1)
  - OESOPHAGEAL HAEMORRHAGE [None]
